FAERS Safety Report 5226235-6 (Version None)
Quarter: 2007Q1

REPORT INFORMATION
  Report Type: 
  Country: None (occurrence: None)
  Receive Date: 20070201
  Receipt Date: 20070123
  Transmission Date: 20070707
  Serious: Yes (Disabling)
  Sender: FDA-Public Use
  Company Number: US-KINGPHARMUSA00001-K200700070

PATIENT

DRUGS (4)
  1. ALTACE [Suspect]
     Indication: HYPERTENSION
     Dosage: 10 MG, QD
     Route: 048
     Dates: start: 20051118
  2. ALTACE [Suspect]
     Dosage: 10 MG, QD
     Route: 048
     Dates: end: 20061221
  3. ASPIRIN [Concomitant]
     Indication: HYPERTENSION
     Dosage: 75 MG, QD
     Route: 048
     Dates: start: 20050101
  4. CO-CODAMOL [Concomitant]
     Indication: PAIN
     Route: 048
     Dates: start: 20020101

REACTIONS (2)
  - PAIN IN EXTREMITY [None]
  - SPINAL COLUMN STENOSIS [None]
